FAERS Safety Report 14015347 (Version 1)
Quarter: 2017Q3

REPORT INFORMATION
  Report Type: Other
  Country: CA (occurrence: CA)
  Receive Date: 20170927
  Receipt Date: 20170927
  Transmission Date: 20171128
  Serious: Yes (Other)
  Sender: FDA-Public Use
  Company Number: CA-APOTEX-2017AP018683

PATIENT
  Age: 24 Year
  Sex: Male

DRUGS (1)
  1. APO-DIVALPROEX [Suspect]
     Active Substance: DIVALPROEX SODIUM
     Indication: BIPOLAR DISORDER
     Dosage: 250 MG, TID
     Route: 048

REACTIONS (2)
  - Product substitution issue [Unknown]
  - Mental impairment [Unknown]
